APPROVED DRUG PRODUCT: HYDROCODONE BITARTRATE AND ACETAMINOPHEN
Active Ingredient: ACETAMINOPHEN; HYDROCODONE BITARTRATE
Strength: 325MG;10MG
Dosage Form/Route: TABLET;ORAL
Application: A211729 | Product #003 | TE Code: AA
Applicant: GRANULES PHARMACEUTICALS INC
Approved: Jan 3, 2020 | RLD: No | RS: No | Type: RX